FAERS Safety Report 6578307-1 (Version None)
Quarter: 2010Q1

REPORT INFORMATION
  Report Type: 
  Country: None (occurrence: None)
  Receive Date: 20100211
  Receipt Date: 20100202
  Transmission Date: 20100710
  Serious: Yes (Hospitalization)
  Sender: FDA-Public Use
  Company Number: B0632943A

PATIENT
  Age: 27 Year
  Sex: Female

DRUGS (1)
  1. RELENZA [Suspect]
     Indication: INFLUENZA
     Route: 065
     Dates: start: 20100109, end: 20100111

REACTIONS (8)
  - ARRHYTHMIA [None]
  - ASTHENIA [None]
  - DIZZINESS [None]
  - FATIGUE [None]
  - INFLUENZA LIKE ILLNESS [None]
  - LOSS OF CONSCIOUSNESS [None]
  - NAUSEA [None]
  - SHOCK [None]
